FAERS Safety Report 14186848 (Version 3)
Quarter: 2017Q4

REPORT INFORMATION
  Report Type: Spontaneous
  Country: FR (occurrence: FR)
  Receive Date: 20171114
  Receipt Date: 20171207
  Transmission Date: 20180321
  Serious: Yes (Other)
  Sender: FDA-Public Use
  Company Number: FR-009507513-1711FRA004810

PATIENT
  Age: 65 Year
  Sex: Female
  Weight: 54 kg

DRUGS (8)
  1. ALIMTA [Suspect]
     Active Substance: PEMETREXED DISODIUM
     Indication: LUNG NEOPLASM MALIGNANT
     Dosage: 660 MG, IN TOTAL
     Route: 041
     Dates: start: 20170927, end: 20170927
  2. CARBOPLATIN. [Suspect]
     Active Substance: CARBOPLATIN
     Indication: LUNG NEOPLASM MALIGNANT
     Dosage: 473 MG, IN TOTAL (STENGTH: 10 MG/ML)
     Route: 041
     Dates: start: 20170927, end: 20170927
  3. ZOPHREN (ONDANSETRON HYDROCHLORIDE) [Suspect]
     Active Substance: ONDANSETRON HYDROCHLORIDE
     Indication: PROPHYLAXIS OF NAUSEA AND VOMITING
     Dosage: 2 DF, QD
     Route: 048
     Dates: start: 20170927, end: 20170929
  4. PRIMPERAN [Suspect]
     Active Substance: METOCLOPRAMIDE HYDROCHLORIDE
     Indication: PROPHYLAXIS OF NAUSEA AND VOMITING
     Dosage: UNKNOWN
     Route: 048
     Dates: start: 20170927
  5. ACTISKENAN [Concomitant]
     Active Substance: MORPHINE SULFATE
     Indication: PAIN
     Dosage: UNK, PRN (5 MG EVERY 4 HOURS IF PAIN)
     Route: 048
     Dates: start: 20170927, end: 201710
  6. SKENAN [Concomitant]
     Active Substance: MORPHINE SULFATE
     Indication: PAIN
     Dosage: 40 MG, QD
     Route: 048
     Dates: start: 20170927, end: 201710
  7. EMEND [Suspect]
     Active Substance: APREPITANT
     Indication: PROPHYLAXIS OF NAUSEA AND VOMITING
     Dosage: 1 DF, QD
     Route: 048
     Dates: start: 20170927, end: 20170928
  8. SOLUPRED [Suspect]
     Active Substance: PREDNISOLONE
     Indication: PREMEDICATION
     Dosage: UNKNOWN
     Route: 048
     Dates: start: 20170927, end: 20170927

REACTIONS (2)
  - Hepatocellular injury [Recovered/Resolved]
  - Hyponatraemia [Recovering/Resolving]

NARRATIVE: CASE EVENT DATE: 201710
